FAERS Safety Report 8508291-2 (Version None)
Quarter: 2012Q3

REPORT INFORMATION
  Report Type: 
  Country: None (occurrence: None)
  Receive Date: 20120713
  Receipt Date: 20120703
  Transmission Date: 20120928
  Serious: No
  Sender: FDA-Public Use
  Company Number: CA-JNJFOC-20120702402

PATIENT
  Sex: Male
  Weight: 90.5 kg

DRUGS (12)
  1. TAMSULOSIN HCL [Concomitant]
     Route: 048
  2. FOLIC ACID [Concomitant]
     Route: 048
  3. MESALAMINE [Concomitant]
     Route: 048
  4. REMICADE [Suspect]
     Indication: ANKYLOSING SPONDYLITIS
     Route: 042
     Dates: start: 20100505
  5. SULFASALAZINE [Concomitant]
     Route: 048
  6. GLICLAZIDE [Concomitant]
     Route: 048
  7. METHOTREXATE [Concomitant]
     Route: 048
  8. REMICADE [Suspect]
     Indication: COLITIS ULCERATIVE
     Route: 042
     Dates: start: 20100505
  9. SULFASALAZINE [Concomitant]
     Route: 048
  10. FINASTERIDE [Concomitant]
     Route: 048
  11. CHOLESTYRAMINE [Concomitant]
     Dosage: 1 PKG
     Route: 048
  12. LOMOTIL [Concomitant]
     Route: 048

REACTIONS (1)
  - URINARY TRACT INFECTION [None]
